FAERS Safety Report 22297600 (Version 1)
Quarter: 2023Q2

REPORT INFORMATION
  Report Type: Report from Study
  Country: ZA (occurrence: ZA)
  Receive Date: 20230509
  Receipt Date: 20230509
  Transmission Date: 20230722
  Serious: Yes (Hospitalization, Other)
  Sender: FDA-Public Use
  Company Number: ZA-002147023-NVSC2023ZA080706

PATIENT
  Age: 42 Year
  Sex: Female

DRUGS (1)
  1. FINGOLIMOD HYDROCHLORIDE [Suspect]
     Active Substance: FINGOLIMOD HYDROCHLORIDE
     Indication: Multiple sclerosis
     Dosage: 0.5 MG, QD
     Route: 048
     Dates: start: 20220615

REACTIONS (17)
  - Nausea [Unknown]
  - Multiple sclerosis relapse [Unknown]
  - Ocular discomfort [Unknown]
  - Chills [Unknown]
  - Malaise [Unknown]
  - Uterine leiomyoma [Unknown]
  - Feeling abnormal [Unknown]
  - Bladder disorder [Unknown]
  - Up and down phenomenon [Unknown]
  - Spinal pain [Unknown]
  - Bone pain [Unknown]
  - Neck pain [Unknown]
  - Pain [Unknown]
  - Decreased appetite [Unknown]
  - Scratch [Unknown]
  - Fatigue [Unknown]
  - Urinary tract infection [Unknown]
